FAERS Safety Report 4517168-9 (Version None)
Quarter: 2005Q1

REPORT INFORMATION
  Report Type: 
  Country: None (occurrence: None)
  Receive Date: 20041005
  Receipt Date: 20031005
  Transmission Date: 20050727
  Serious: Yes (Other)
  Sender: FDA-Public Use
  Company Number: US-JNJFOC-20031001618

PATIENT
  Sex: Female

DRUGS (1)
  1. ORAL CONTRACEPTIVE NOS (ORAL CONTRACEPTIVE NOS) TABLETS [Suspect]
     Indication: CONTRACEPTION

REACTIONS (1)
  - THROMBOSIS [None]
